FAERS Safety Report 8556415 (Version 3)
Quarter: 2012Q4

REPORT INFORMATION
  Report Type: 
  Country: DE (occurrence: DE)
  Receive Date: 20120510
  Receipt Date: 20121218
  Transmission Date: 20130627
  Serious: Yes (Death, Hospitalization)
  Sender: FDA-Public Use
  Company Number: DE-ELI_LILLY_AND_COMPANY-DE201205001883

PATIENT
  Age: 70 Year
  Sex: Male

DRUGS (10)
  1. ALIMTA [Suspect]
     Indication: NON-SMALL CELL LUNG CANCER STAGE IV
     Dosage: 500 mg/m2, unknown
     Route: 042
     Dates: start: 20110926
  2. CISPLATIN [Concomitant]
     Indication: NON-SMALL CELL LUNG CANCER STAGE IV
     Dosage: 75 mg/m2, unknown
     Route: 042
     Dates: start: 20110926
  3. PAMIDRONATE [Concomitant]
     Dosage: 90 mg, unknown
     Dates: start: 20110927
  4. MESALAZIN [Concomitant]
     Dosage: 500 mg, qid
  5. PREDNISOLON [Concomitant]
     Dosage: 7.5 mg, qd
  6. ASS [Concomitant]
     Dosage: 100 mg, qd
  7. PANTOPRAZOLE [Concomitant]
     Dosage: 40 mg, qd
  8. METAMIZOLE [Concomitant]
     Dosage: 20 Gtt, qid
  9. TILIDIN [Concomitant]
     Dosage: 20 Gtt, qid
  10. FOLIC ACID [Concomitant]
     Dosage: 0.4 mg, qd

REACTIONS (5)
  - Multi-organ failure [Fatal]
  - Hepatic failure [Fatal]
  - Renal failure acute [Fatal]
  - Ascites [Unknown]
  - Liver injury [Unknown]
